FAERS Safety Report 16568788 (Version 2)
Quarter: 2019Q3

REPORT INFORMATION
  Report Type: Report from Study
  Country: US (occurrence: US)
  Receive Date: 20190713
  Receipt Date: 20190918
  Transmission Date: 20191004
  Serious: Yes (Other)
  Sender: FDA-Public Use
  Company Number: PHEH2019US029015

PATIENT
  Sex: Female

DRUGS (1)
  1. COSENTYX [Suspect]
     Active Substance: SECUKINUMAB
     Indication: PRODUCT USED FOR UNKNOWN INDICATION
     Dosage: UNK
     Route: 065

REACTIONS (14)
  - Renal failure [Unknown]
  - Pruritus [Unknown]
  - Renal cyst [Unknown]
  - Muscle injury [Unknown]
  - Hair growth abnormal [Unknown]
  - Hair colour changes [Unknown]
  - Restless legs syndrome [Unknown]
  - Limb discomfort [Unknown]
  - Drug hypersensitivity [Unknown]
  - Rheumatoid arthritis [Unknown]
  - Cyst [Unknown]
  - Gout [Unknown]
  - Nerve injury [Unknown]
  - Blister [Unknown]
